FAERS Safety Report 23783121 (Version 1)
Quarter: 2024Q2

REPORT INFORMATION
  Report Type: Other
  Country: US (occurrence: US)
  Receive Date: 20240425
  Receipt Date: 20240425
  Transmission Date: 20240716
  Serious: Yes (Hospitalization, Other)
  Sender: FDA-Public Use
  Company Number: US-Nova Laboratories Limited-2154253

PATIENT
  Age: 13 Year
  Sex: Male

DRUGS (10)
  1. PURIXAN [Suspect]
     Active Substance: MERCAPTOPURINE
     Indication: B-cell type acute leukaemia
  2. METHOTREXATE [Suspect]
     Active Substance: METHOTREXATE
  3. PREDNISONE [Suspect]
     Active Substance: PREDNISONE
  4. VINCRISTINE [Suspect]
     Active Substance: VINCRISTINE
  5. MERCAPTOPURINE [Suspect]
     Active Substance: MERCAPTOPURINE
  6. MERCAPTOPURINE [Suspect]
     Active Substance: MERCAPTOPURINE
  7. MERCAPTOPURINE [Suspect]
     Active Substance: MERCAPTOPURINE
  8. MERCAPTOPURINE [Suspect]
     Active Substance: MERCAPTOPURINE
  9. MERCAPTOPURINE [Suspect]
     Active Substance: MERCAPTOPURINE
  10. MERCAPTOPURINE [Suspect]
     Active Substance: MERCAPTOPURINE

REACTIONS (5)
  - Metabolic acidosis [Recovered/Resolved]
  - Thrombocytopenia [Unknown]
  - Neutropenia [Recovered/Resolved]
  - Hepatotoxicity [Unknown]
  - Hypoglycaemia [Recovered/Resolved]
